FAERS Safety Report 7484307-X (Version None)
Quarter: 2011Q2

REPORT INFORMATION
  Report Type: 
  Country: None (occurrence: None)
  Receive Date: 20110517
  Receipt Date: 20101123
  Transmission Date: 20111010
  Serious: Yes (Hospitalization, Other)
  Sender: FDA-Public Use
  Company Number: US-BAYER-201037961NA

PATIENT
  Sex: Female
  Weight: 56.689 kg

DRUGS (3)
  1. YASMIN [Suspect]
     Indication: ACNE
  2. YAZ [Suspect]
     Indication: ACNE
     Dosage: UNK
     Dates: start: 20070401, end: 20070101
  3. DROSPIRENONE AND ETHINYL ESTRADIOL [Suspect]
     Indication: ACNE

REACTIONS (7)
  - CEREBELLAR INFARCTION [None]
  - NAUSEA [None]
  - HEADACHE [None]
  - MOBILITY DECREASED [None]
  - HYPOAESTHESIA [None]
  - HYPOREFLEXIA [None]
  - DIZZINESS [None]
